FAERS Safety Report 14858514 (Version 1)
Quarter: 2018Q2

REPORT INFORMATION
  Report Type: Spontaneous
  Country: US (occurrence: US)
  Receive Date: 20180421
  Receipt Date: 20180421
  Transmission Date: 20180711
  Serious: Yes (Disabling)
  Sender: FDA-Public Use
  Company Number: None

PATIENT
  Age: 58 Year
  Sex: Female
  Weight: 81 kg

DRUGS (11)
  1. LANSOPROZOLE [Concomitant]
  2. VITAMIN D [Concomitant]
     Active Substance: CHOLECALCIFEROL
  3. VITAMIN B [Concomitant]
     Active Substance: VITAMIN B
  4. METHOTREXATE. [Concomitant]
     Active Substance: METHOTREXATE
  5. SYNTHROID [Concomitant]
     Active Substance: LEVOTHYROXINE SODIUM
  6. GAMMAKED [Concomitant]
     Active Substance: HUMAN IMMUNOGLOBULIN G
  7. FOLIC ACID. [Concomitant]
     Active Substance: FOLIC ACID
  8. LEVOTHRONINE [Concomitant]
  9. LIVALO [Suspect]
     Active Substance: PITAVASTATIN CALCIUM
     Indication: BLOOD CHOLESTEROL INCREASED
     Dosage: ?          QUANTITY:1 TABLET(S);?
     Route: 048
  10. TRAZODONE [Concomitant]
     Active Substance: TRAZODONE HYDROCHLORIDE
  11. METFORMIN [Concomitant]
     Active Substance: METFORMIN HYDROCHLORIDE

REACTIONS (5)
  - Blood creatine phosphokinase increased [None]
  - Muscular weakness [None]
  - Fatigue [None]
  - Dysstasia [None]
  - Impaired work ability [None]

NARRATIVE: CASE EVENT DATE: 20131224
